FAERS Safety Report 6672382-1 (Version None)
Quarter: 2010Q2

REPORT INFORMATION
  Report Type: 
  Country: None (occurrence: None)
  Receive Date: 20100406
  Receipt Date: 20100324
  Transmission Date: 20101027
  Serious: Yes (Other)
  Sender: FDA-Public Use
  Company Number: 009397

PATIENT
  Age: 34 Year
  Sex: Male

DRUGS (1)
  1. LEVOCETIRIZINE (LEVOCETIRIZINE) [Suspect]
     Dosage: 5 MG; QD ORAL, (5MG QD, 1 TABLET AT 10PM ORAL)
     Route: 048

REACTIONS (3)
  - CONJUNCTIVITIS [None]
  - HALO VISION [None]
  - IRIDOCYCLITIS [None]
